FAERS Safety Report 15149430 (Version 1)
Quarter: 2018Q3

REPORT INFORMATION
  Report Type: Spontaneous
  Country: BR (occurrence: BR)
  Receive Date: 20180716
  Receipt Date: 20180716
  Transmission Date: 20181010
  Serious: Yes (Life-Threatening, Other)
  Sender: FDA-Public Use
  Company Number: PHHY2018BR072050

PATIENT
  Sex: Female
  Weight: 72 kg

DRUGS (11)
  1. CLOXAZOLAM [Suspect]
     Active Substance: CLOXAZOLAM
     Indication: ANXIETY
     Dosage: 2 DF, QD
     Route: 048
     Dates: start: 2012
  2. CLOXAZOLAM [Suspect]
     Active Substance: CLOXAZOLAM
     Indication: MENTAL DISORDER
  3. DORMONID [Concomitant]
     Active Substance: MIDAZOLAM MALEATE
     Indication: SLEEP DISORDER
     Dosage: UNK
     Route: 065
  4. MIDAZOLAM [Concomitant]
     Active Substance: MIDAZOLAM HYDROCHLORIDE
     Indication: INSOMNIA
     Dosage: 2 DF, QD
     Route: 048
     Dates: start: 2012
  5. CLOXAZOLAM [Suspect]
     Active Substance: CLOXAZOLAM
     Indication: INSOMNIA
  6. ALPRAZOLAM. [Suspect]
     Active Substance: ALPRAZOLAM
     Indication: DEPRESSION
  7. CLOXAZOLAM [Suspect]
     Active Substance: CLOXAZOLAM
     Indication: DEPRESSION
  8. ALPRAZOLAM. [Suspect]
     Active Substance: ALPRAZOLAM
     Indication: ANXIETY
     Dosage: 1 DF, QD
     Route: 048
  9. ALPRAZOLAM. [Suspect]
     Active Substance: ALPRAZOLAM
     Indication: MENTAL DISORDER
  10. BUPROPION. [Concomitant]
     Active Substance: BUPROPION
     Indication: PRODUCT USED FOR UNKNOWN INDICATION
     Dosage: UNK
     Route: 065
     Dates: start: 2012
  11. LEVOTIROXIN [Concomitant]
     Active Substance: LEVOTHYROXINE SODIUM
     Indication: SECONDARY HYPERTHYROIDISM
     Dosage: 1 DF, QD
     Route: 048
     Dates: start: 2003

REACTIONS (25)
  - Feeling abnormal [Recovering/Resolving]
  - Panic disorder [Recovering/Resolving]
  - Muscle spasms [Not Recovered/Not Resolved]
  - Myalgia [Unknown]
  - Dizziness [Unknown]
  - Dysphemia [Not Recovered/Not Resolved]
  - Depression [Unknown]
  - Emotional disorder [Unknown]
  - Motor dysfunction [Not Recovered/Not Resolved]
  - Headache [Not Recovered/Not Resolved]
  - Suicide attempt [Unknown]
  - Paraesthesia [Not Recovered/Not Resolved]
  - Fibromyalgia [Not Recovered/Not Resolved]
  - Skin discolouration [Not Recovered/Not Resolved]
  - Muscle contracture [Unknown]
  - Nausea [Not Recovered/Not Resolved]
  - Dependence [Unknown]
  - Memory impairment [Recovering/Resolving]
  - Anxiety disorder [Recovering/Resolving]
  - Confusional state [Not Recovered/Not Resolved]
  - Speech disorder [Not Recovered/Not Resolved]
  - Weight increased [Not Recovered/Not Resolved]
  - Tachycardia [Recovering/Resolving]
  - Fear [Recovering/Resolving]
  - Visual impairment [Not Recovered/Not Resolved]

NARRATIVE: CASE EVENT DATE: 2013
